FAERS Safety Report 17874352 (Version 1)
Quarter: 2020Q2

REPORT INFORMATION
  Report Type: Report from Study
  Country: CA (occurrence: CA)
  Receive Date: 20200609
  Receipt Date: 20200609
  Transmission Date: 20200714
  Serious: Yes (Other)
  Sender: FDA-Public Use
  Company Number: CA-ORION CORPORATION ORION PHARMA-TREX2020-2221

PATIENT
  Sex: Female

DRUGS (5)
  1. PLAQUENIL [Concomitant]
     Active Substance: HYDROXYCHLOROQUINE SULFATE
     Route: 048
  2. METHOTREXATE (TRADE NAME UNKNOWN) [Suspect]
     Active Substance: METHOTREXATE
     Indication: PRODUCT USED FOR UNKNOWN INDICATION
     Route: 048
  3. METHOTREXATE (TRADE NAME UNKNOWN) [Suspect]
     Active Substance: METHOTREXATE
     Route: 042
  4. ENBREL [Concomitant]
     Active Substance: ETANERCEPT
     Route: 042
  5. LEFLUNOMIDE. [Concomitant]
     Active Substance: LEFLUNOMIDE
     Route: 048

REACTIONS (10)
  - Haemorrhage [Unknown]
  - Gait disturbance [Unknown]
  - General physical health deterioration [Unknown]
  - Pain [Unknown]
  - Grip strength decreased [Unknown]
  - Muscular weakness [Unknown]
  - Nephrolithiasis [Unknown]
  - Drug ineffective [Unknown]
  - Abdominal discomfort [Unknown]
  - Dysstasia [Unknown]
